FAERS Safety Report 9748379 (Version 2)
Quarter: 2014Q1

REPORT INFORMATION
  Report Type: Report from Study
  Country: JP (occurrence: JP)
  Receive Date: 20131212
  Receipt Date: 20140123
  Transmission Date: 20141002
  Serious: Yes (Hospitalization)
  Sender: FDA-Public Use
  Company Number: JP-JNJFOC-20131205338

PATIENT
  Age: 63 Year
  Sex: Female
  Weight: 51 kg

DRUGS (14)
  1. SIMPONI [Suspect]
     Indication: RHEUMATOID ARTHRITIS
     Route: 058
     Dates: start: 20120711, end: 20120711
  2. SIMPONI [Suspect]
     Indication: RHEUMATOID ARTHRITIS
     Route: 058
     Dates: start: 20120606, end: 20120606
  3. SIMPONI [Suspect]
     Indication: RHEUMATOID ARTHRITIS
     Route: 058
     Dates: start: 20120508, end: 20120508
  4. TACROLIMUS HYDRATE [Concomitant]
     Indication: RHEUMATOID ARTHRITIS
     Route: 065
  5. BREDININ [Concomitant]
     Indication: RHEUMATOID ARTHRITIS
     Route: 048
  6. PREDNISOLONE [Concomitant]
     Indication: RHEUMATOID ARTHRITIS
     Route: 048
     Dates: end: 20120815
  7. PREDONINE [Concomitant]
     Indication: RHEUMATOID ARTHRITIS
     Route: 048
     Dates: start: 20130816
  8. LOXONIN [Concomitant]
     Indication: RHEUMATOID ARTHRITIS
     Route: 065
  9. URSO [Concomitant]
     Indication: LIVER FUNCTION TEST ABNORMAL
     Route: 048
  10. TAKEPRON [Concomitant]
     Indication: PROPHYLAXIS
     Route: 065
  11. LIPITOR [Concomitant]
     Indication: DYSLIPIDAEMIA
     Route: 048
  12. GLACTIV [Concomitant]
     Indication: DIABETES MELLITUS
     Route: 048
  13. AMARYL [Concomitant]
     Indication: DIABETES MELLITUS
     Route: 048
  14. ACTOS [Concomitant]
     Indication: DIABETES MELLITUS
     Route: 048

REACTIONS (2)
  - Polymyositis [Recovered/Resolved]
  - Pneumonia bacterial [Recovered/Resolved]
